FAERS Safety Report 6631714-0 (Version None)
Quarter: 2010Q1

REPORT INFORMATION
  Report Type: 
  Country: None (occurrence: None)
  Receive Date: 20100312
  Receipt Date: 20100301
  Transmission Date: 20100710
  Serious: Yes (Hospitalization, Disabling, Other)
  Sender: FDA-Public Use
  Company Number: ES-PFIZER INC-2009280102

PATIENT
  Age: 56 Year
  Sex: Male

DRUGS (4)
  1. CHAMPIX [Suspect]
     Indication: SMOKING CESSATION THERAPY
     Dosage: 0.5 MG, 1X/DAY IN THE MORNING
     Route: 048
     Dates: start: 20070219, end: 20070221
  2. CHAMPIX [Suspect]
     Dosage: 0.5 MG, 2X/DAY (EVERY 12 HOURS)
     Route: 048
     Dates: start: 20070222, end: 20070225
  3. CHAMPIX [Suspect]
     Dosage: 1 MG, 2X/DAY (EVERY 12 HOURS)
     Route: 048
     Dates: start: 20070226
  4. CHAMPIX [Suspect]
     Dosage: 1 MG, 1X/DAY IN THE MORNING
     Route: 048
     Dates: start: 20070614, end: 20070622

REACTIONS (8)
  - DIARRHOEA [None]
  - GASTROINTESTINAL DISORDER [None]
  - INSOMNIA [None]
  - PSORIASIS [None]
  - PSORIATIC ARTHROPATHY [None]
  - RECTAL HAEMORRHAGE [None]
  - RECTAL POLYP [None]
  - WEIGHT DECREASED [None]
